FAERS Safety Report 17533775 (Version 1)
Quarter: 2020Q1

REPORT INFORMATION
  Report Type: Spontaneous
  Country: CN (occurrence: CN)
  Receive Date: 20200312
  Receipt Date: 20200312
  Transmission Date: 20200409
  Serious: Yes (Hospitalization, Other)
  Sender: FDA-Public Use
  Company Number: CN-PFIZER INC-2020108783

PATIENT
  Age: 32 Year
  Sex: Female
  Weight: 67 kg

DRUGS (2)
  1. METHOTREXATE. [Suspect]
     Active Substance: METHOTREXATE
     Indication: ABORTION
     Dosage: 23 MG, 1X/DAY
     Route: 030
     Dates: start: 20200216, end: 20200220
  2. SODIUM CHLORIDE. [Concomitant]
     Active Substance: SODIUM CHLORIDE
     Indication: VEHICLE SOLUTION USE
     Dosage: 2 ML, 1X/DAY
     Route: 030
     Dates: start: 20200216, end: 20200220

REACTIONS (7)
  - Pain [Recovering/Resolving]
  - Off label use [Recovered/Resolved]
  - Rash [Recovering/Resolving]
  - Vulvovaginal discomfort [Recovering/Resolving]
  - Product use in unapproved indication [Recovered/Resolved]
  - Mouth ulceration [Recovering/Resolving]
  - Vulvovaginal pain [Recovering/Resolving]

NARRATIVE: CASE EVENT DATE: 20200216
